FAERS Safety Report 13835581 (Version 3)
Quarter: 2020Q3

REPORT INFORMATION
  Report Type: Report from Study
  Country: CA (occurrence: CA)
  Receive Date: 20170804
  Receipt Date: 20180423
  Transmission Date: 20201104
  Serious: Yes (Life-Threatening, Hospitalization)
  Sender: FDA-Public Use
  Company Number: CA-ASTRAZENECA-2016SE89810

PATIENT
  Age: 74 Year
  Sex: Female

DRUGS (5)
  1. CARBOPLATIN. [Suspect]
     Active Substance: CARBOPLATIN
     Indication: SMALL CELL LUNG CANCER
     Dosage: 540 AUC (21 DAY CYCLE)
     Route: 042
     Dates: start: 20160802
  2. DURVALUMAB. [Suspect]
     Active Substance: DURVALUMAB
     Indication: SMALL CELL LUNG CANCER
     Dosage: 1335 MG DAILY IN 21 DAY CYCLE (15MG/KG DAY 1?21)
     Route: 042
     Dates: start: 20160802
  3. TREMELIMUMAB. [Suspect]
     Active Substance: TREMELIMUMAB
     Indication: SMALL CELL LUNG CANCER
     Dosage: 268 MG DAILY IN 21 DAY CYCLE (3MG/KG Q6WX1)
     Route: 042
     Dates: start: 20160802
  4. ETOPOSIDE. [Suspect]
     Active Substance: ETOPOSIDE
     Indication: SMALL CELL LUNG CANCER
     Dosage: 200MG DAILY FOR 21 DAY CYCLE (100MG/M2, DAY 1?3)
     Route: 042
     Dates: start: 20160802, end: 20160803
  5. PROPRANOLOL [Concomitant]
     Active Substance: PROPRANOLOL HYDROCHLORIDE
     Dates: start: 20160817, end: 20160825

REACTIONS (8)
  - Hyperthyroidism [Unknown]
  - Diarrhoea [Not Recovered/Not Resolved]
  - Nephritis [Unknown]
  - Cardiac failure [Unknown]
  - Myocarditis [Unknown]
  - Nausea [Recovering/Resolving]
  - Vomiting [Recovering/Resolving]
  - Febrile neutropenia [Unknown]

NARRATIVE: CASE EVENT DATE: 20160817
